FAERS Safety Report 13713389 (Version 1)
Quarter: 2017Q3

REPORT INFORMATION
  Report Type: Spontaneous
  Country: KR (occurrence: KR)
  Receive Date: 20170704
  Receipt Date: 20170704
  Transmission Date: 20171127
  Serious: Yes (Hospitalization, Other)
  Sender: FDA-Public Use
  Company Number: KR-JNJFOC-20170626576

PATIENT

DRUGS (1)
  1. INFLIXIMAB, RECOMBINANT [Suspect]
     Active Substance: INFLIXIMAB
     Indication: COLITIS ULCERATIVE
     Route: 042

REACTIONS (6)
  - Meningitis tuberculous [Unknown]
  - Infusion related reaction [Unknown]
  - Drug ineffective [Unknown]
  - Type IV hypersensitivity reaction [Unknown]
  - Organising pneumonia [Unknown]
  - Pneumocystis jirovecii pneumonia [Unknown]
